FAERS Safety Report 9706717 (Version 2)
Quarter: 2013Q4

REPORT INFORMATION
  Report Type: Spontaneous
  Country: US (occurrence: US)
  Receive Date: 20131125
  Receipt Date: 20131211
  Transmission Date: 20140711
  Serious: Yes (Life-Threatening, Hospitalization, Other)
  Sender: FDA-Public Use
  Company Number: US-BAYER-2013-139827

PATIENT
  Sex: Female

DRUGS (2)
  1. MIRENA [Suspect]
     Dosage: 20 MCG/24HR, CONT
     Route: 015
     Dates: start: 2010
  2. MIRENA [Suspect]
     Dosage: 20 MCG/24HR, CONT
     Route: 015
     Dates: start: 2008, end: 2010

REACTIONS (16)
  - Uterine perforation [None]
  - Genital haemorrhage [None]
  - Device expulsion [Recovered/Resolved]
  - Uterine fibrosis [None]
  - Injury [None]
  - Emotional distress [None]
  - Abdominal pain lower [None]
  - General physical health deterioration [None]
  - Anxiety [None]
  - Anhedonia [None]
  - Device issue [None]
  - Abortion spontaneous [None]
  - Infertility [None]
  - Pregnancy with contraceptive device [None]
  - Drug ineffective [None]
  - Internal injury [None]
